FAERS Safety Report 7875337 (Version 26)
Quarter: 2013Q4

REPORT INFORMATION
  Report Type: Spontaneous
  Country: US (occurrence: US)
  Receive Date: 20110329
  Receipt Date: 20131112
  Transmission Date: 20140711
  Serious: Yes (Death, Other)
  Sender: FDA-Public Use
  Company Number: PHEH2011US00462

PATIENT
  Age: 58 Year
  Sex: Male
  Weight: 68 kg

DRUGS (11)
  1. ZOMETA [Suspect]
     Dosage: 4 MG
     Route: 042
  2. AREDIA [Suspect]
     Route: 042
  3. PREDNISONE [Concomitant]
  4. COREG [Concomitant]
  5. PLAVIX [Concomitant]
  6. VASOTEC [Concomitant]
  7. ZOCOR [Concomitant]
  8. DEMECLOCYCLINE [Concomitant]
  9. FLORINEF [Concomitant]
  10. NORCO [Concomitant]
  11. ENALAPRIL [Concomitant]

REACTIONS (132)
  - Death [Fatal]
  - Osteonecrosis of jaw [Unknown]
  - Injury [Unknown]
  - Pain [Unknown]
  - Anxiety [Unknown]
  - Anhedonia [Unknown]
  - Infection [Unknown]
  - Osteomyelitis [Unknown]
  - Exposed bone in jaw [Unknown]
  - Deformity [Unknown]
  - Jaw fracture [Unknown]
  - Emotional distress [Unknown]
  - Lung neoplasm malignant [Unknown]
  - Metastases to abdominal cavity [Unknown]
  - Metastases to bone [Unknown]
  - Metastases to adrenals [Unknown]
  - Intervertebral disc degeneration [Unknown]
  - Lymphadenopathy mediastinal [Unknown]
  - Emphysema [Unknown]
  - Retroperitoneal lymphadenopathy [Unknown]
  - Intermittent claudication [Not Recovered/Not Resolved]
  - Hyponatraemia [Unknown]
  - Lung hyperinflation [Unknown]
  - Asthenia [Unknown]
  - Fall [Unknown]
  - Haemarthrosis [Unknown]
  - Synovial cyst [Unknown]
  - Arthralgia [Unknown]
  - Renal failure [Unknown]
  - Myocardial infarction [Unknown]
  - Arteriosclerosis [Unknown]
  - Pathological fracture [Unknown]
  - Muscle atrophy [Unknown]
  - Hypertension [Unknown]
  - Coronary artery disease [Unknown]
  - Hyperlipidaemia [Unknown]
  - Peptic ulcer [Unknown]
  - Abdominal pain [Unknown]
  - Blood pressure decreased [Unknown]
  - Back pain [Unknown]
  - Constipation [Unknown]
  - Diarrhoea [Unknown]
  - Prostatomegaly [Unknown]
  - Transitional cell carcinoma [Unknown]
  - Skin oedema [Unknown]
  - Chronic sinusitis [Unknown]
  - Mass [Unknown]
  - Dehydration [Unknown]
  - Hypokalaemia [Unknown]
  - Cellulitis [Unknown]
  - Nausea [Unknown]
  - Chills [Unknown]
  - Femur fracture [Unknown]
  - Bursitis [Unknown]
  - Pericardial effusion [Unknown]
  - Hepatic steatosis [Unknown]
  - Metastases to liver [Unknown]
  - Chronic obstructive pulmonary disease [Unknown]
  - Chest pain [Unknown]
  - Dyspnoea [Unknown]
  - Hiatus hernia [Unknown]
  - Peripheral ischaemia [Unknown]
  - Angina pectoris [Unknown]
  - Throat irritation [Unknown]
  - Hyperhidrosis [Unknown]
  - Diastolic dysfunction [Unknown]
  - Tricuspid valve incompetence [Unknown]
  - Scoliosis [Unknown]
  - Exostosis [Unknown]
  - Muscle oedema [Unknown]
  - Bone marrow oedema [Unknown]
  - Intervertebral disc protrusion [Unknown]
  - Spinal osteoarthritis [Unknown]
  - Stress fracture [Unknown]
  - Spinal fracture [Unknown]
  - Urinary incontinence [Unknown]
  - Faecal incontinence [Unknown]
  - Laceration [Unknown]
  - Peripheral vascular disorder [Unknown]
  - Depression [Unknown]
  - Abdominal mass [Unknown]
  - Atrophy [Unknown]
  - Hypoaesthesia [Unknown]
  - Metastases to kidney [Unknown]
  - Metastases to stomach [Unknown]
  - Cauda equina syndrome [Unknown]
  - Urinary retention [Unknown]
  - Adrenal insufficiency [Unknown]
  - Decubitus ulcer [Unknown]
  - Pigmentation disorder [Unknown]
  - Cyanosis [Unknown]
  - Osteosclerosis [Unknown]
  - Osteolysis [Unknown]
  - Iron deficiency anaemia [Unknown]
  - Neuropathy peripheral [Unknown]
  - Diverticulum intestinal [Unknown]
  - Necrosis [Unknown]
  - Lymphadenopathy [Unknown]
  - Intervertebral disc space narrowing [Unknown]
  - Dysuria [Unknown]
  - Inguinal hernia [Unknown]
  - Poor peripheral circulation [Unknown]
  - Visual impairment [Unknown]
  - Hypotension [Unknown]
  - Lower limb fracture [Unknown]
  - Muscular weakness [Unknown]
  - Cough [Unknown]
  - Joint swelling [Unknown]
  - Musculoskeletal stiffness [Unknown]
  - Wound [Unknown]
  - Iliac artery occlusion [Unknown]
  - Femoral artery occlusion [Unknown]
  - Laryngeal oedema [Unknown]
  - Swelling [Unknown]
  - Pain in jaw [Unknown]
  - Aortic valve sclerosis [Unknown]
  - Mitral valve calcification [Unknown]
  - Peripheral artery stenosis [Unknown]
  - Azotaemia [Unknown]
  - Dizziness [Unknown]
  - Oedema peripheral [Unknown]
  - Bradycardia [Unknown]
  - Adrenal disorder [Unknown]
  - Skin lesion [Unknown]
  - Scleroderma [Unknown]
  - Purulence [Unknown]
  - Osteoarthritis [Unknown]
  - Soft tissue inflammation [Unknown]
  - Joint effusion [Unknown]
  - Radius fracture [Unknown]
  - Gait disturbance [Unknown]
  - Bone pain [Unknown]
